FAERS Safety Report 11841279 (Version 2)
Quarter: 2016Q2

REPORT INFORMATION
  Report Type: Report from Study
  Country: BR (occurrence: BR)
  Receive Date: 20151216
  Receipt Date: 20160407
  Transmission Date: 20160815
  Serious: Yes (Other)
  Sender: FDA-Public Use
  Company Number: BR-BRISTOL-MYERS SQUIBB COMPANY-BMS-2015-085303

PATIENT
  Age: 63 Year
  Sex: Female

DRUGS (3)
  1. VALSARTAN. [Concomitant]
     Active Substance: VALSARTAN
     Indication: PRODUCT USED FOR UNKNOWN INDICATION
     Route: 065
  2. PURAN [Concomitant]
     Active Substance: LEVOTHYROXINE SODIUM
     Indication: PRODUCT USED FOR UNKNOWN INDICATION
     Route: 065
  3. ABATACEPT [Suspect]
     Active Substance: ABATACEPT
     Indication: RHEUMATOID ARTHRITIS
     Dosage: 3 VIALS, QMO
     Route: 042
     Dates: start: 20150623

REACTIONS (6)
  - Amnesia [Unknown]
  - Influenza [Unknown]
  - Thyroid disorder [Unknown]
  - Bladder disorder [Unknown]
  - Cough [Unknown]
  - Cystopexy [Unknown]

NARRATIVE: CASE EVENT DATE: 20151021
